FAERS Safety Report 25362490 (Version 1)
Quarter: 2025Q2

REPORT INFORMATION
  Report Type: Spontaneous
  Country: US (occurrence: None)
  Receive Date: 20250525
  Receipt Date: 20250525
  Transmission Date: 20250716
  Serious: No
  Sender: FDA-CTU
  Company Number: None

PATIENT
  Age: 3 Year
  Sex: Female
  Weight: 16.7 kg

DRUGS (4)
  1. CARBOPLATIN [Suspect]
     Active Substance: CARBOPLATIN
     Dates: end: 20250505
  2. ETOPOSIDE [Suspect]
     Active Substance: ETOPOSIDE
     Dates: end: 20250505
  3. FILGRASTIM [Suspect]
     Active Substance: FILGRASTIM
     Dates: end: 20250514
  4. MELPHALAN [Suspect]
     Active Substance: MELPHALAN
     Dates: end: 20250504

REACTIONS (6)
  - Tachycardia [None]
  - Pyrexia [None]
  - Blood pressure decreased [None]
  - Septic shock [None]
  - Acute kidney injury [None]
  - Ascites [None]

NARRATIVE: CASE EVENT DATE: 20250515
